FAERS Safety Report 5272816-3 (Version None)
Quarter: 2007Q1

REPORT INFORMATION
  Report Type: 
  Country: None (occurrence: None)
  Receive Date: 20061219
  Receipt Date: 20060913
  Transmission Date: 20070707
  Serious: Yes (Hospitalization, Other)
  Sender: FDA-Public Use
  Company Number: US-JNJFOC-20060904272

PATIENT
  Age: 28 Year
  Sex: Female
  Weight: 76.6579 kg

DRUGS (1)
  1. ORTHO EVRA [Suspect]
     Indication: DRUG USE FOR UNKNOWN INDICATION
     Dosage: TRANSDERMAL
     Route: 062
     Dates: start: 20021122, end: 20031005

REACTIONS (3)
  - CHOLELITHIASIS [None]
  - DEEP VEIN THROMBOSIS [None]
  - HEPATIC ADENOMA [None]
